FAERS Safety Report 9767385 (Version 3)
Quarter: 2014Q2

REPORT INFORMATION
  Report Type: Spontaneous
  Country: US (occurrence: US)
  Receive Date: 20131217
  Receipt Date: 20140415
  Transmission Date: 20141212
  Serious: No
  Sender: FDA-Public Use
  Company Number: US-PFIZER INC-2013357666

PATIENT
  Age: 54 Year
  Sex: Male

DRUGS (2)
  1. INLYTA [Suspect]
     Indication: RENAL CANCER
     Dosage: 5 MG, 2X/DAY
     Dates: start: 20130319
  2. INLYTA [Suspect]
     Dosage: 3 MG, 2X/DAY (Q 12 HOURS)
     Dates: start: 20131211

REACTIONS (1)
  - Diarrhoea [Recovered/Resolved]
